FAERS Safety Report 23628862 (Version 1)
Quarter: 2024Q1

REPORT INFORMATION
  Report Type: Spontaneous
  Country: DE (occurrence: DE)
  Receive Date: 20240313
  Receipt Date: 20240313
  Transmission Date: 20240410
  Serious: Yes (Hospitalization)
  Sender: FDA-Public Use
  Company Number: None

PATIENT
  Age: 66 Year
  Sex: Male
  Weight: 61.3 kg

DRUGS (4)
  1. CELLCEPT [Suspect]
     Active Substance: MYCOPHENOLATE MOFETIL
     Indication: Renal transplant
     Dosage: 1000 MG, UNK, START DATE: 19-AUG-2015
     Route: 048
     Dates: end: 20161028
  2. MYFORTIC [Suspect]
     Active Substance: MYCOPHENOLATE SODIUM
     Indication: Renal transplant
     Dosage: UNK, START DATE: 08-NOV-2016
     Route: 065
  3. PROGRAF [Suspect]
     Active Substance: TACROLIMUS
     Indication: Renal transplant
     Dosage: 3 MG, BID (6 MG, QD), START DATE: 19-AUG-2015
     Route: 048
  4. PREDNISONE [Concomitant]
     Active Substance: PREDNISONE
     Indication: Renal transplant
     Dosage: 5 MG, UNK
     Route: 048
     Dates: start: 20150819, end: 20161028

REACTIONS (5)
  - Gastroenteritis norovirus [Recovered/Resolved]
  - Renal impairment [Recovered/Resolved]
  - Gastroenteritis norovirus [Recovered/Resolved]
  - Haemolysis [Recovering/Resolving]
  - Diarrhoea [Recovered/Resolved]

NARRATIVE: CASE EVENT DATE: 20161026
